FAERS Safety Report 8923533 (Version 2)
Quarter: 2012Q4

REPORT INFORMATION
  Report Type: 
  Country: AU (occurrence: AU)
  Receive Date: 20121123
  Receipt Date: 20121129
  Transmission Date: 20130627
  Serious: Yes (Other)
  Sender: FDA-Public Use
  Company Number: AU-PFIZER INC-2012291490

PATIENT
  Sex: Female

DRUGS (1)
  1. LYRICA [Suspect]
     Indication: NERVE PAIN
     Dosage: UNK

REACTIONS (2)
  - Melaena [Unknown]
  - Diarrhoea [Unknown]
